FAERS Safety Report 5866522-1 (Version None)
Quarter: 2008Q3

REPORT INFORMATION
  Report Type: 
  Country: None (occurrence: None)
  Receive Date: 20080902
  Receipt Date: 20080902
  Transmission Date: 20090109
  Serious: Yes (Hospitalization)
  Sender: FDA-Public Use
  Company Number: PHEH1995US02814

PATIENT
  Sex: Female
  Weight: 59.6 kg

DRUGS (5)
  1. NEORAL [Suspect]
     Route: 048
     Dates: start: 19950910
  2. ACYCLOVIR [Concomitant]
  3. AXID [Concomitant]
  4. PHYTONADIONE [Concomitant]
  5. PREDNISONE TAB [Concomitant]

REACTIONS (8)
  - ANXIETY [None]
  - APATHY [None]
  - CONFUSIONAL STATE [None]
  - HALLUCINATION, VISUAL [None]
  - NERVOUSNESS [None]
  - NEUROSIS [None]
  - SOCIAL AVOIDANT BEHAVIOUR [None]
  - TREMOR [None]
